FAERS Safety Report 14024296 (Version 3)
Quarter: 2017Q4

REPORT INFORMATION
  Report Type: Report from Study
  Country: FR (occurrence: FR)
  Receive Date: 20170929
  Receipt Date: 20171012
  Transmission Date: 20180321
  Serious: Yes (Life-Threatening, Hospitalization)
  Sender: FDA-Public Use
  Company Number: FR-CELGENEUS-FRA-20170405848

PATIENT
  Age: 67 Year
  Sex: Male
  Weight: 63 kg

DRUGS (8)
  1. GEMCITABINE [Suspect]
     Active Substance: GEMCITABINE\GEMCITABINE HYDROCHLORIDE
     Dosage: 1000 MG/M2
     Route: 041
     Dates: start: 20170511
  2. GEMCITABINE [Suspect]
     Active Substance: GEMCITABINE\GEMCITABINE HYDROCHLORIDE
     Indication: PANCREATIC CARCINOMA METASTATIC
     Dosage: 1000 MG/M2
     Route: 041
     Dates: start: 20170119, end: 20170328
  3. GEMZAR [Suspect]
     Active Substance: GEMCITABINE HYDROCHLORIDE
     Indication: PANCREATIC CARCINOMA METASTATIC
     Dosage: 1406 MILLIGRAM
     Route: 041
     Dates: start: 20170322, end: 20170322
  4. OXYGEN. [Concomitant]
     Active Substance: OXYGEN
     Indication: HYPOXIA
     Dosage: 2 L/MIN
     Route: 065
  5. PARACETAMOL [Concomitant]
     Active Substance: ACETAMINOPHEN
     Indication: PRODUCT USED FOR UNKNOWN INDICATION
     Route: 065
  6. CIFLOX [Concomitant]
     Active Substance: CIPROFLOXACIN
     Indication: PRODUCT USED FOR UNKNOWN INDICATION
     Route: 065
  7. ROVAMYCIN [Concomitant]
     Active Substance: SPIRAMYCIN
     Indication: PYREXIA
     Route: 065
  8. TAZOCILLINE [Concomitant]
     Active Substance: PIPERACILLIN SODIUM\TAZOBACTAM SODIUM
     Indication: PYREXIA
     Route: 065

REACTIONS (2)
  - Pneumocystis jirovecii pneumonia [Recovered/Resolved]
  - Febrile neutropenia [Recovered/Resolved]

NARRATIVE: CASE EVENT DATE: 20170328
